FAERS Safety Report 5475308-1 (Version None)
Quarter: 2007Q3

REPORT INFORMATION
  Report Type: 
  Country: None (occurrence: None)
  Receive Date: 20070928
  Receipt Date: 20070914
  Transmission Date: 20080115
  Serious: Yes (Other)
  Sender: FDA-Public Use
  Company Number: 237860K07USA

PATIENT
  Age: 32 Year
  Sex: Female

DRUGS (8)
  1. REBIF [Suspect]
     Indication: MULTIPLE SCLEROSIS
     Dosage: 44 MCG, 3 IN 1 WEEKS, SUBCUTANEOUS
     Route: 058
     Dates: start: 20060314, end: 20070301
  2. SEROQUEL [Suspect]
     Dates: end: 20070301
  3. RELPAX [Suspect]
  4. PROVIGIL [Suspect]
  5. VESICARE [Suspect]
  6. BACLOFEN [Suspect]
  7. MINOCYCLINE (MINOCYCLINE /00232401/) [Suspect]
  8. CELEXA [Suspect]

REACTIONS (3)
  - ABORTION SPONTANEOUS [None]
  - DRUG EXPOSURE DURING PREGNANCY [None]
  - PREGNANCY [None]
